FAERS Safety Report 8545476-3 (Version None)
Quarter: 2012Q3

REPORT INFORMATION
  Report Type: 
  Country: None (occurrence: None)
  Receive Date: 20120727
  Receipt Date: 20111109
  Transmission Date: 20120928
  Serious: No
  Sender: FDA-Public Use
  Company Number: US-ASTRAZENECA-2011SE67862

PATIENT
  Age: 55 Year
  Sex: Female
  Weight: 113.4 kg

DRUGS (3)
  1. SEROQUEL [Suspect]
     Indication: BIPOLAR DISORDER
     Route: 048
     Dates: start: 20100101
  2. BENICAR [Concomitant]
     Indication: BLOOD PRESSURE
  3. THYROID TAB [Concomitant]
     Dosage: 1G 65MG ONCE A DAY.

REACTIONS (5)
  - EMPHYSEMA [None]
  - VISUAL IMPAIRMENT [None]
  - CHRONIC OBSTRUCTIVE PULMONARY DISEASE [None]
  - HYPERTENSION [None]
  - ANAEMIA [None]
